FAERS Safety Report 13037016 (Version 1)
Quarter: 2016Q4

REPORT INFORMATION
  Report Type: Spontaneous
  Country: US (occurrence: US)
  Receive Date: 20161216
  Receipt Date: 20161216
  Transmission Date: 20170207
  Serious: Yes (Other)
  Sender: FDA-Public Use
  Company Number: US-BAUSCH-BL-2016-031499

PATIENT
  Age: 61 Year
  Sex: Female

DRUGS (1)
  1. LOTEMAX [Suspect]
     Active Substance: LOTEPREDNOL ETABONATE
     Indication: CYCLITIS
     Dosage: TWO DROPS TO THREE DROPS IN EACH EYE DAILY
     Route: 047

REACTIONS (4)
  - Cyclitis [Not Recovered/Not Resolved]
  - Off label use [Not Recovered/Not Resolved]
  - Drug dose omission [Unknown]
  - Condition aggravated [Not Recovered/Not Resolved]
